FAERS Safety Report 5028590-9 (Version None)
Quarter: 2006Q2

REPORT INFORMATION
  Report Type: 
  Country: None (occurrence: None)
  Receive Date: 20060615
  Receipt Date: 20060615
  Transmission Date: 20061013
  Serious: No
  Sender: FDA-Public Use
  Company Number: None

PATIENT
  Age: 21 Year
  Sex: Female
  Weight: 63.5036 kg

DRUGS (1)
  1. YASMIN [Suspect]
     Indication: CONTRACEPTION
     Dosage: 1 PILL A DAY   DAILY   PO
     Route: 048
     Dates: start: 20060603, end: 20060613

REACTIONS (8)
  - ANXIETY [None]
  - CRYING [None]
  - FEELING ABNORMAL [None]
  - HEADACHE [None]
  - INSOMNIA [None]
  - STOMACH DISCOMFORT [None]
  - VAGINAL PAIN [None]
  - VULVOVAGINAL DRYNESS [None]
